FAERS Safety Report 14606490 (Version 3)
Quarter: 2018Q2

REPORT INFORMATION
  Report Type: Report from Study
  Country: GB (occurrence: GB)
  Receive Date: 20180307
  Receipt Date: 20180510
  Transmission Date: 20180711
  Serious: Yes (Hospitalization, Other)
  Sender: FDA-Public Use
  Company Number: GB-BAXTER-2018BAX006367

PATIENT
  Age: 47 Year
  Sex: Female
  Weight: 80 kg

DRUGS (7)
  1. EPOETIN ALFA [Suspect]
     Active Substance: ERYTHROPOIETIN
     Indication: NEPHROGENIC ANAEMIA
     Dosage: UNK
     Route: 065
     Dates: start: 20170802
  2. METRONIDAZOLE 500 MG / 100 ML INTRAVENOUS INFUSION [Suspect]
     Active Substance: METRONIDAZOLE
     Indication: CELLULITIS
     Dosage: UNKNOWN
     Route: 042
     Dates: start: 20171220, end: 20171228
  3. DARBEPOETIN ALFA [Suspect]
     Active Substance: DARBEPOETIN ALFA
     Indication: NEPHROGENIC ANAEMIA
     Dosage: UNKNOWN
     Route: 065
     Dates: start: 20170802
  4. DARBEPOETIN ALFA [Suspect]
     Active Substance: DARBEPOETIN ALFA
     Dosage: UNKNOWN
     Route: 065
     Dates: start: 20170802
  5. DAPRODUSTAT [Suspect]
     Active Substance: DAPRODUSTAT
     Indication: NEPHROGENIC ANAEMIA
     Dosage: UNKNOWN
     Route: 065
     Dates: start: 20170802
  6. FELODIPINE. [Suspect]
     Active Substance: FELODIPINE
     Indication: HYPERTENSION
     Dosage: 2.5 (FURTHER NOT SPECIFIED)
     Route: 048
     Dates: start: 20170711, end: 20171004
  7. FLUCLOXACILLIN [Suspect]
     Active Substance: FLUCLOXACILLIN
     Indication: CELLULITIS
     Dosage: 1 G, UNK
     Route: 042
     Dates: start: 20171221, end: 20171226

REACTIONS (4)
  - Lower respiratory tract infection [Recovered/Resolved]
  - Clostridium difficile infection [Recovered/Resolved]
  - Rhinovirus infection [Recovered/Resolved]
  - Diarrhoea [Recovered/Resolved]

NARRATIVE: CASE EVENT DATE: 20180102
